FAERS Safety Report 4936766-1 (Version None)
Quarter: 2006Q1

REPORT INFORMATION
  Report Type: 
  Country: None (occurrence: None)
  Receive Date: 20060307
  Receipt Date: 20051021
  Transmission Date: 20060701
  Serious: Yes (Hospitalization)
  Sender: FDA-Public Use
  Company Number: US-MERCK-0510USA08738

PATIENT
  Age: 67 Year
  Sex: Female
  Weight: 77 kg

DRUGS (32)
  1. KLOR-CON [Concomitant]
     Route: 065
  2. COREG [Concomitant]
     Route: 065
  3. LIBRIUM [Concomitant]
     Route: 065
  4. HUMULIN [Concomitant]
     Route: 065
  5. VIOXX [Suspect]
     Indication: BACK PAIN
     Route: 048
     Dates: start: 20000808, end: 20031114
  6. PREDNISONE [Concomitant]
     Route: 065
  7. DEMADEX [Concomitant]
     Route: 065
  8. MECLIZINE [Concomitant]
     Route: 065
  9. VIOXX [Suspect]
     Route: 048
     Dates: start: 20000808, end: 20000831
  10. VIOXX [Suspect]
     Route: 048
     Dates: start: 20011023, end: 20031014
  11. CEFTIN [Concomitant]
     Route: 065
  12. VICODIN [Concomitant]
     Route: 065
  13. NEXIUM [Concomitant]
     Route: 065
  14. FLAGYL [Concomitant]
     Route: 065
  15. ERYTHROMYCIN [Concomitant]
     Route: 065
  16. CLARINEX [Concomitant]
     Route: 065
  17. CIPRO [Concomitant]
     Route: 065
  18. FLOXIN [Concomitant]
     Route: 065
  19. VIOXX [Suspect]
     Indication: MYALGIA
     Route: 048
     Dates: start: 20000808, end: 20031114
  20. VIOXX [Suspect]
     Route: 048
     Dates: start: 20000808, end: 20000831
  21. VIOXX [Suspect]
     Route: 048
     Dates: start: 20011023, end: 20031014
  22. FLOVENT [Concomitant]
     Indication: CHRONIC OBSTRUCTIVE PULMONARY DISEASE
     Route: 065
  23. FLONASE [Concomitant]
     Route: 065
  24. HUMALOG [Concomitant]
     Route: 065
  25. LANTUS [Concomitant]
     Route: 065
  26. ASTELIN [Concomitant]
     Route: 065
  27. OMNICEF [Concomitant]
     Route: 065
  28. LOMOTIL [Concomitant]
     Route: 065
  29. TYLENOL (CAPLET) [Concomitant]
     Route: 065
     Dates: start: 20010710, end: 20050901
  30. SEREVENT [Concomitant]
     Indication: CHRONIC OBSTRUCTIVE PULMONARY DISEASE
     Route: 065
  31. ALLEGRA [Concomitant]
     Route: 065
  32. DARVOCET [Concomitant]
     Route: 065

REACTIONS (33)
  - ALANINE AMINOTRANSFERASE INCREASED [None]
  - ARTHRALGIA [None]
  - ATELECTASIS [None]
  - BACK PAIN [None]
  - BLOOD ALKALINE PHOSPHATASE INCREASED [None]
  - BLOOD GLUCOSE INCREASED [None]
  - BRONCHITIS [None]
  - CARDIAC FAILURE CONGESTIVE [None]
  - CARDIOMEGALY [None]
  - CHEST PAIN [None]
  - CHOKING SENSATION [None]
  - COUGH [None]
  - DIABETIC NEUROPATHY [None]
  - DIZZINESS [None]
  - DYSPNOEA [None]
  - FALL [None]
  - HEMIPARESIS [None]
  - HYPERGLYCAEMIA [None]
  - HYPERLIPIDAEMIA [None]
  - HYPOALBUMINAEMIA [None]
  - HYPOXIA [None]
  - LEUKOCYTOSIS [None]
  - MENISCUS LESION [None]
  - MYALGIA [None]
  - PNEUMONIA [None]
  - POLYMYALGIA RHEUMATICA [None]
  - RENAL FAILURE [None]
  - ROTATOR CUFF SYNDROME [None]
  - SCAR [None]
  - SPINAL OSTEOARTHRITIS [None]
  - UPPER RESPIRATORY TRACT INFECTION [None]
  - VAGINAL DYSPLASIA [None]
  - VENTRICULAR DYSFUNCTION [None]
